FAERS Safety Report 19731430 (Version 1)
Quarter: 2021Q3

REPORT INFORMATION
  Report Type: Spontaneous
  Country: NL (occurrence: NL)
  Receive Date: 20210820
  Receipt Date: 20210820
  Transmission Date: 20211014
  Serious: Yes (Other)
  Sender: FDA-Public Use
  Company Number: NL-TEIKOKU PHARMA USA-TPU2020-00859

PATIENT
  Age: 61 Year

DRUGS (2)
  1. LIDOCAINE. [Suspect]
     Active Substance: LIDOCAINE
     Indication: PRODUCT USED FOR UNKNOWN INDICATION
     Route: 065
  2. LITHIUM CARBONATE. [Suspect]
     Active Substance: LITHIUM CARBONATE
     Indication: PRODUCT USED FOR UNKNOWN INDICATION
     Dates: start: 1996

REACTIONS (4)
  - Labelled drug-drug interaction medication error [Unknown]
  - Memory impairment [Not Recovered/Not Resolved]
  - Malaise [Unknown]
  - Chronic kidney disease [Not Recovered/Not Resolved]
